FAERS Safety Report 19178651 (Version 2)
Quarter: 2021Q2

REPORT INFORMATION
  Report Type: Spontaneous
  Country: CO (occurrence: CO)
  Receive Date: 20210426
  Receipt Date: 20210601
  Transmission Date: 20210717
  Serious: Yes (Disabling, Other)
  Sender: FDA-Public Use
  Company Number: CO-AMGEN-COLSP2021063135

PATIENT
  Age: 62 Year
  Sex: Female

DRUGS (1)
  1. ENBREL [Suspect]
     Active Substance: ETANERCEPT
     Indication: PSORIATIC ARTHROPATHY
     Dosage: 50 MG
     Route: 058
     Dates: start: 2014, end: 202010

REACTIONS (8)
  - Mobility decreased [Unknown]
  - Contusion [Unknown]
  - Peripheral swelling [Unknown]
  - Pain in extremity [Unknown]
  - Hypoaesthesia [Unknown]
  - Dysstasia [Unknown]
  - Musculoskeletal disorder [Unknown]
  - Fall [Unknown]

NARRATIVE: CASE EVENT DATE: 20210406
